FAERS Safety Report 18382833 (Version 1)
Quarter: 2020Q4

REPORT INFORMATION
  Report Type: Spontaneous
  Country: US (occurrence: US)
  Receive Date: 20201014
  Receipt Date: 20201014
  Transmission Date: 20210114
  Serious: Yes (Other)
  Sender: FDA-Public Use
  Company Number: None

PATIENT
  Sex: Male
  Weight: 63 kg

DRUGS (5)
  1. ACETAZOLAMIDE. [Suspect]
     Active Substance: ACETAZOLAMIDE
     Indication: OCULAR DISCOMFORT
  2. ATORVASTATIN [Concomitant]
     Active Substance: ATORVASTATIN
  3. ECOTRIN [Concomitant]
     Active Substance: ASPIRIN
  4. METOPROLOL. [Concomitant]
     Active Substance: METOPROLOL
  5. CENTRUM VITAMINS [Concomitant]

REACTIONS (2)
  - Paraesthesia [None]
  - Blood urine present [None]
